FAERS Safety Report 20520080 (Version 1)
Quarter: 2022Q1

REPORT INFORMATION
  Report Type: Spontaneous
  Country: None (occurrence: US)
  Receive Date: 20220225
  Receipt Date: 20220225
  Transmission Date: 20220423
  Serious: Yes (Death)
  Sender: FDA-Public Use
  Company Number: US-Church + Dwight Co., Inc.-2126225

PATIENT
  Age: 77 Year
  Sex: Female

DRUGS (1)
  1. ORAJEL 3X MEDICATED FOR TOOTHACHE AND GUM [Suspect]
     Active Substance: BENZOCAINE\MENTHOL\ZINC CHLORIDE
     Indication: Analgesic therapy
     Route: 048
     Dates: start: 20220202, end: 20220202

REACTIONS (1)
  - Dyspnoea [Fatal]

NARRATIVE: CASE EVENT DATE: 20220202
